FAERS Safety Report 9297642 (Version 2)
Quarter: 2013Q2

REPORT INFORMATION
  Report Type: Spontaneous
  Country: US (occurrence: US)
  Receive Date: 20130520
  Receipt Date: 20130618
  Transmission Date: 20140414
  Serious: Yes (Hospitalization, Other)
  Sender: FDA-Public Use
  Company Number: US-JNJFOC-20130504230

PATIENT
  Age: 84 Year
  Sex: Female

DRUGS (14)
  1. XARELTO [Suspect]
     Indication: ATRIAL FIBRILLATION
     Route: 048
     Dates: start: 20130326, end: 20130422
  2. XARELTO [Suspect]
     Indication: CEREBROVASCULAR ACCIDENT PROPHYLAXIS
     Route: 048
     Dates: start: 20130326, end: 20130422
  3. CARVEDILOL [Concomitant]
     Indication: ATRIAL FIBRILLATION
     Route: 048
  4. ESOMEPRAZOLE [Concomitant]
     Route: 048
  5. TOVIAZ [Concomitant]
     Route: 048
  6. FEXOFENADINE [Concomitant]
     Route: 048
  7. DIFLUCAN [Concomitant]
     Route: 048
  8. LOSARTAN [Concomitant]
     Indication: HYPERTENSION
     Route: 048
  9. SINGULAIR [Concomitant]
     Indication: CHRONIC OBSTRUCTIVE PULMONARY DISEASE
     Dosage: AT BED TIME
     Route: 048
  10. MACRODANTIN [Concomitant]
     Dosage: AT BED TIME
     Route: 048
  11. OMEGA 3 [Concomitant]
     Dosage: AT BED TIME
     Route: 048
  12. RECLAST [Concomitant]
     Dosage: AT BED TIME
     Route: 065
  13. PROTONIX [Concomitant]
     Indication: GASTROOESOPHAGEAL REFLUX DISEASE
     Route: 065
  14. ZOVIRAX [Concomitant]
     Route: 065

REACTIONS (5)
  - Pericardial effusion [Recovered/Resolved]
  - Dyspnoea [Recovered/Resolved]
  - Pleural effusion [Unknown]
  - Pulmonary mass [Unknown]
  - Fatigue [Unknown]
